FAERS Safety Report 9624250 (Version 1)
Quarter: 2013Q4

REPORT INFORMATION
  Report Type: Spontaneous
  Country: US (occurrence: US)
  Receive Date: 20131015
  Receipt Date: 20131015
  Transmission Date: 20140711
  Serious: Yes (Other)
  Sender: FDA-Public Use
  Company Number: US-BAYER-2013-124296

PATIENT
  Age: 33 Year
  Sex: Male
  Weight: 75 kg

DRUGS (2)
  1. ALEVE CAPLET [Suspect]
     Dosage: 1 DF, UNK
     Route: 048
     Dates: start: 201310
  2. ALEVE CAPLET [Suspect]
     Dosage: UNK
     Route: 048
     Dates: start: 201310

REACTIONS (3)
  - Haematochezia [Not Recovered/Not Resolved]
  - Rectal haemorrhage [None]
  - Extra dose administered [None]
